FAERS Safety Report 19402887 (Version 1)
Quarter: 2021Q2

REPORT INFORMATION
  Report Type: Spontaneous
  Country: DE (occurrence: DE)
  Receive Date: 20210611
  Receipt Date: 20210611
  Transmission Date: 20210717
  Serious: Yes (Hospitalization)
  Sender: FDA-Public Use
  Company Number: DE-TEVA-2021-DE-1919956

PATIENT
  Age: 84 Year
  Sex: Male
  Weight: 92.1 kg

DRUGS (15)
  1. TAMSULOSIN BASICS 0,4MG [Concomitant]
     Dosage: .4 MILLIGRAM DAILY; 0?0?1?0
  2. APIXABAN [Suspect]
     Active Substance: APIXABAN
     Dosage: 5 MILLIGRAM DAILY; 1?0?1?0
     Route: 065
  3. BISOPROLOL [Concomitant]
     Active Substance: BISOPROLOL
     Dosage: 2.5 MILLIGRAM DAILY; 1?0?0?0
  4. FERRO SANOL DUODENAL 100MG (FE2+) [Concomitant]
     Dosage: 100 MILLIGRAM DAILY; 1?0?0?0
  5. ALLOPURINOL. [Concomitant]
     Active Substance: ALLOPURINOL
     Dosage: .5 DOSAGE FORMS DAILY; 300 MG, 0.5?0?0?0
  6. B12 ANKERMANN [Concomitant]
     Dosage: 1 MILLIGRAM DAILY; 1?0?0?0
  7. SITAGLIPTIN [Concomitant]
     Active Substance: SITAGLIPTIN
     Dosage: 50 MILLIGRAM DAILY; 1?0?0?0
  8. ATORVASTATIN/EZETIMIB [Concomitant]
     Dosage: 1 DOSAGE FORMS DAILY; 40|10 MG, 0?0?1?0
  9. FOLSAURE [Concomitant]
     Active Substance: FOLIC ACID
     Dosage: 5 MILLIGRAM DAILY; 1?0?0?0
  10. THYRONAJOD 50 HENNING [Concomitant]
     Dosage: 1 DOSAGE FORMS DAILY; 0.05|0.15 MG, 1?0?0?0
  11. PANTOPRAZOL [Concomitant]
     Active Substance: PANTOPRAZOLE SODIUM
     Dosage: 20 MILLIGRAM DAILY; 1?0?0?0
  12. DEKRISTOLMIN 20000I.E. [Concomitant]
     Dosage: 20,000 IU ONCE A WEEK
  13. RAMIPRIL. [Suspect]
     Active Substance: RAMIPRIL
     Dosage: 5 MILLIGRAM DAILY; 1?0?1?0
     Route: 065
  14. TORASEMID [Suspect]
     Active Substance: TORSEMIDE
     Dosage: 10 MG, 2?1?0?0
     Route: 065
  15. GELONIDA SCHMERZTABLETTEN [Concomitant]
     Dosage: 30 | 500 MG, IF NECESSARY

REACTIONS (4)
  - General physical health deterioration [Unknown]
  - Fatigue [Unknown]
  - Dyspnoea [Unknown]
  - Haematochezia [Unknown]
